FAERS Safety Report 7700236-8 (Version None)
Quarter: 2011Q3

REPORT INFORMATION
  Report Type: 
  Country: None (occurrence: None)
  Receive Date: 20110822
  Receipt Date: 20110809
  Transmission Date: 20111222
  Serious: Yes (Other)
  Sender: FDA-Public Use
  Company Number: US-JNJFOC-20110805556

PATIENT
  Age: 59 Year
  Sex: Female
  Weight: 50.35 kg

DRUGS (3)
  1. ALL OTHER THERAPEUTIC DRUG [Concomitant]
     Indication: HYPOTHYROIDISM
     Route: 065
  2. ADVIL LIQUI-GELS [Suspect]
     Indication: PAIN IN EXTREMITY
     Dosage: 2 TABLETS
     Route: 065
     Dates: start: 20110806
  3. PRECISE EXTRA STRENGTH PAIN RELIEVING CREAM [Suspect]
     Indication: PAIN IN EXTREMITY
     Dosage: QUARTER SIZE ON EACH ARM ONCE DAILY FOR ABOUT 3-4 DAYS.
     Route: 061
     Dates: end: 20110806

REACTIONS (1)
  - ANAPHYLACTIC SHOCK [None]
